FAERS Safety Report 8620159-X (Version None)
Quarter: 2012Q3

REPORT INFORMATION
  Report Type: 
  Country: None (occurrence: None)
  Receive Date: 20120817
  Receipt Date: 20120817
  Transmission Date: 20120928
  Serious: Yes (Life-Threatening, Hospitalization, Other)
  Sender: FDA-Public Use
  Company Number: None

PATIENT
  Age: 58 Year
  Sex: Male
  Weight: 82.7 kg

DRUGS (1)
  1. HALOPERIDOL [Suspect]
     Indication: CONFUSIONAL STATE
     Dosage: 5 MG ONCE IV
     Route: 042
     Dates: start: 20120622, end: 20120622

REACTIONS (5)
  - HYPERPYREXIA [None]
  - CONFUSIONAL STATE [None]
  - CONDITION AGGRAVATED [None]
  - TACHYCARDIA [None]
  - HYPERTENSION [None]
